FAERS Safety Report 10252547 (Version 1)
Quarter: 2014Q2

REPORT INFORMATION
  Report Type: Spontaneous
  Country: US (occurrence: US)
  Receive Date: 20140623
  Receipt Date: 20140623
  Transmission Date: 20141212
  Serious: Yes (Hospitalization, Other)
  Sender: FDA-Public Use
  Company Number: US-ELI_LILLY_AND_COMPANY-US201406005989

PATIENT
  Sex: Female

DRUGS (4)
  1. HUMALOG 25% LISPRO, 75% NPL [Suspect]
     Indication: TYPE 1 DIABETES MELLITUS
     Dosage: UNK, PRN
     Route: 065
  2. LORTAB [Concomitant]
  3. ASPIRIN [Concomitant]
     Dosage: 320 DF, QD
     Route: 065
  4. BOSUTINIB [Concomitant]
     Indication: LEUKAEMIA

REACTIONS (3)
  - Myocardial infarction [Unknown]
  - Memory impairment [Unknown]
  - Osteoarthritis [Unknown]
